FAERS Safety Report 7046874-X (Version None)
Quarter: 2010Q4

REPORT INFORMATION
  Report Type: 
  Country: None (occurrence: None)
  Receive Date: 20101015
  Receipt Date: 20101013
  Transmission Date: 20110411
  Serious: Yes (Hospitalization)
  Sender: FDA-Public Use
  Company Number: FR-SANOFI-AVENTIS-2010SA062343

PATIENT
  Age: 69 Year
  Sex: Female

DRUGS (8)
  1. PREDNISONE [Suspect]
     Indication: RHEUMATOID ARTHRITIS
     Route: 048
  2. ARAVA [Suspect]
     Indication: RHEUMATOID ARTHRITIS
     Route: 048
  3. MABTHERA [Suspect]
     Indication: RHEUMATOID ARTHRITIS
     Route: 042
     Dates: end: 20100722
  4. TAREG [Suspect]
     Route: 048
  5. ACETAMINOPHEN [Suspect]
     Indication: RHEUMATOID ARTHRITIS
  6. OROCAL [Suspect]
  7. VALACYCLOVIR [Concomitant]
     Route: 048
     Dates: start: 20100820
  8. OFLOCET [Concomitant]
     Route: 048
     Dates: start: 20100820

REACTIONS (1)
  - GINGIVITIS ULCERATIVE [None]
